FAERS Safety Report 18420370 (Version 1)
Quarter: 2020Q4

REPORT INFORMATION
  Report Type: Spontaneous
  Country: US (occurrence: US)
  Receive Date: 20201023
  Receipt Date: 20201023
  Transmission Date: 20210114
  Serious: Yes (Life-Threatening, Hospitalization)
  Sender: FDA-Public Use
  Company Number: None

PATIENT
  Age: 17 Year
  Sex: Male
  Weight: 56 kg

DRUGS (2)
  1. TACROLIMUS (GENERIC EQUIVALENT) CAPSULE, IMMEDIATE RELEASE [Suspect]
     Active Substance: TACROLIMUS
     Indication: HEART TRANSPLANT
     Route: 048
     Dates: start: 20200903, end: 20200906
  2. VORICONAZOLE. [Suspect]
     Active Substance: VORICONAZOLE
     Indication: BRONCHOPULMONARY ASPERGILLOSIS
     Route: 048
     Dates: start: 20200903, end: 20200908

REACTIONS (12)
  - Abdominal pain [None]
  - Oxygen consumption increased [None]
  - Nausea [None]
  - Cytomegalovirus infection [None]
  - Pyrexia [None]
  - Pain [None]
  - Tachycardia [None]
  - Chills [None]
  - Epstein-Barr virus infection [None]
  - Lethargy [None]
  - Viral load increased [None]
  - Pancreatitis [None]

NARRATIVE: CASE EVENT DATE: 20200904
